FAERS Safety Report 7550900-9 (Version None)
Quarter: 2011Q2

REPORT INFORMATION
  Report Type: 
  Country: None (occurrence: None)
  Receive Date: 20110609
  Receipt Date: 20110603
  Transmission Date: 20111010
  Serious: Yes (Hospitalization)
  Sender: FDA-Public Use
  Company Number: 2010S1000858

PATIENT
  Age: 37 Year
  Sex: Female

DRUGS (6)
  1. XANAX [Concomitant]
  2. LIVALO [Suspect]
     Dosage: 2 MG; PO
     Route: 048
     Dates: start: 20101004, end: 20101101
  3. AMBIEN [Concomitant]
  4. MAGNESIUM [Concomitant]
  5. LEVOTHYROXINE SODIUM [Concomitant]
  6. ESOMEPRAZOLE MAGNESIUM [Concomitant]

REACTIONS (1)
  - CONVULSION [None]
